FAERS Safety Report 14899786 (Version 1)
Quarter: 2018Q2

REPORT INFORMATION
  Report Type: Spontaneous
  Country: US (occurrence: US)
  Receive Date: 20180516
  Receipt Date: 20180516
  Transmission Date: 20180711
  Serious: Yes (Hospitalization, Other)
  Sender: FDA-Public Use
  Company Number: US-STRIDES ARCOLAB LIMITED-2018SP000779

PATIENT

DRUGS (2)
  1. VANCOMYCIN [Suspect]
     Active Substance: VANCOMYCIN
     Indication: SEPSIS
     Dosage: UNKNOWN
     Route: 042
  2. MEROPENEM. [Suspect]
     Active Substance: MEROPENEM
     Indication: SEPSIS
     Dosage: UNKNOWN
     Route: 042

REACTIONS (6)
  - Bacteraemia [Recovered/Resolved]
  - Tenderness [Unknown]
  - Pyrexia [Unknown]
  - Purpura [Unknown]
  - Stenotrophomonas infection [Recovered/Resolved]
  - Bone pain [Not Recovered/Not Resolved]
